FAERS Safety Report 17678280 (Version 1)
Quarter: 2020Q2

REPORT INFORMATION
  Report Type: Spontaneous
  Country: US (occurrence: US)
  Receive Date: 20200417
  Receipt Date: 20200417
  Transmission Date: 20200714
  Serious: No
  Sender: FDA-Public Use
  Company Number: US-LUPIN PHARMACEUTICALS INC.-2019-08314

PATIENT
  Age: 33 Year
  Sex: Male
  Weight: 104.31 kg

DRUGS (3)
  1. RIFAMPIN CAPSULES USP, 300 MG [Suspect]
     Active Substance: RIFAMPIN
     Dosage: 2 DOSAGE FORM, QD (SECOND DOSE)
     Route: 048
     Dates: start: 20191204
  2. RIFAMPIN CAPSULES USP, 300 MG [Suspect]
     Active Substance: RIFAMPIN
     Dosage: 2 DOSAGE FORM, QD (NEW REFILL))
     Route: 048
     Dates: start: 20191203
  3. RIFAMPIN CAPSULES USP, 300 MG [Suspect]
     Active Substance: RIFAMPIN
     Indication: TUBERCULOSIS
     Dosage: UNK
     Route: 048

REACTIONS (3)
  - Chromaturia [Recovered/Resolved]
  - Drug ineffective [Unknown]
  - Product quality issue [Unknown]

NARRATIVE: CASE EVENT DATE: 20191203
